FAERS Safety Report 9646545 (Version 2)
Quarter: 2014Q1

REPORT INFORMATION
  Report Type: Spontaneous
  Country: BR (occurrence: BR)
  Receive Date: 20131025
  Receipt Date: 20140108
  Transmission Date: 20141002
  Serious: Yes (Other)
  Sender: FDA-Public Use
  Company Number: BR-ASTRAZENECA-2013SE77353

PATIENT
  Age: 79 Year
  Sex: Female
  Weight: 70 kg

DRUGS (7)
  1. ATENOLOL [Suspect]
     Indication: HYPERTENSION
     Route: 048
     Dates: end: 2013
  2. ATENOLOL [Suspect]
     Indication: HYPERTENSION
     Route: 048
     Dates: start: 2013
  3. ATACAND COMB [Suspect]
     Indication: HYPERTENSION
     Dosage: 16/5 MG, DAILY
     Route: 048
     Dates: start: 201309
  4. LOSARTAN [Concomitant]
     Indication: HYPERTENSION
     Dates: end: 201309
  5. PURAN T4 [Concomitant]
     Indication: HYPOTHYROIDISM
  6. METFORMIN [Concomitant]
     Indication: DIABETES MELLITUS
  7. UNSPECIFIED MEDICATION [Concomitant]
     Indication: DIABETES MELLITUS

REACTIONS (7)
  - Hypertension [Recovered/Resolved]
  - Dysuria [Not Recovered/Not Resolved]
  - Chromaturia [Not Recovered/Not Resolved]
  - Pain in extremity [Not Recovered/Not Resolved]
  - Pollakiuria [Not Recovered/Not Resolved]
  - Local swelling [Not Recovered/Not Resolved]
  - Drug ineffective [Unknown]
